FAERS Safety Report 20369655 (Version 1)
Quarter: 2022Q1

REPORT INFORMATION
  Report Type: Spontaneous
  Country: US (occurrence: None)
  Receive Date: 20220124
  Receipt Date: 20220124
  Transmission Date: 20220423
  Serious: Yes (Hospitalization)
  Sender: FDA-Public Use
  Company Number: None

PATIENT
  Sex: Female

DRUGS (3)
  1. ENVARSUS XR [Suspect]
     Active Substance: TACROLIMUS
     Indication: Renal transplant
     Dosage: OTHER FREQUENCY : DAILY/BREAKFAST;?
     Route: 048
     Dates: start: 20210810
  2. ENVARSUS XR [Suspect]
     Active Substance: TACROLIMUS
     Dosage: OTHER FREQUENCY : DAILY/BREAKFAST;?
     Route: 048
  3. MYCOPHENOLIC ACID [Concomitant]
     Active Substance: MYCOPHENOLIC ACID

REACTIONS (2)
  - Urinary tract infection [None]
  - Escherichia infection [None]
